FAERS Safety Report 6247865-9 (Version None)
Quarter: 2009Q2

REPORT INFORMATION
  Report Type: 
  Country: None (occurrence: None)
  Receive Date: 20090626
  Receipt Date: 20090615
  Transmission Date: 20091009
  Serious: Yes (Hospitalization)
  Sender: FDA-Public Use
  Company Number: DE-ELI_LILLY_AND_COMPANY-DE200906003237

PATIENT
  Sex: Female
  Weight: 100 kg

DRUGS (10)
  1. LISPRO REGLISPRO [Suspect]
     Indication: TYPE 2 DIABETES MELLITUS
     Dosage: 22 IU IN MORNING-26 IU MIDDAY-38 IU IN EVENING DAILY
     Route: 058
     Dates: start: 20090224
  2. LISPRO NPL [Suspect]
     Dosage: 62 IE DAILY
     Route: 058
     Dates: start: 20090224
  3. BISOPROLOL [Concomitant]
     Indication: HYPERTENSION
     Dosage: 5 MG, UNK
     Dates: start: 19950101
  4. INEGY [Concomitant]
     Indication: HYPERLIPIDAEMIA
     Dosage: 10/20 MG
     Dates: start: 20030101
  5. OMEPRAZOL [Concomitant]
     Indication: GASTRITIS
     Dosage: 20 MG, UNK
     Dates: start: 19980101
  6. HYDROCHLOROTHIAZIDE [Concomitant]
     Indication: HYPERTENSION
     Dosage: 12.5 MG, UNK
     Dates: start: 19950101
  7. CARMEN [Concomitant]
     Indication: HYPERTENSION
     Dates: start: 20000101
  8. DICLOFENAC [Concomitant]
     Dosage: 75 MG, UNK
     Dates: start: 20000101
  9. CIPRALEX [Concomitant]
     Indication: DEPRESSION
     Dosage: 20 MG, UNK
     Dates: start: 20031101
  10. ATACAND [Concomitant]
     Indication: HYPERTENSION
     Dates: start: 20050101

REACTIONS (1)
  - INJECTION SITE ABSCESS [None]
